FAERS Safety Report 5826331-6 (Version None)
Quarter: 2008Q3

REPORT INFORMATION
  Report Type: 
  Country: None (occurrence: None)
  Receive Date: 20080723
  Receipt Date: 20080715
  Transmission Date: 20090109
  Serious: Yes (Life-Threatening, Hospitalization)
  Sender: FDA-Public Use
  Company Number: 100#03#2008-03716

PATIENT
  Age: 79 Year
  Sex: Female

DRUGS (9)
  1. AZITHROMYCIN [Suspect]
     Indication: DRUG USE FOR UNKNOWN INDICATION
     Dosage: 500 MG TWICE DAILY
     Dates: start: 20080424
  2. ATORVASTATIN CALCIUM [Concomitant]
  3. LEVOTHYROXINE SODIUM [Concomitant]
  4. METRONIDAZOLE [Concomitant]
  5. PREDNISONE [Concomitant]
  6. RAMIPRIL [Concomitant]
  7. SERETIDE (FLUTICASONE, SALMETEROL) [Concomitant]
  8. SPIRIVA [Concomitant]
  9. VANCOMYCIN [Concomitant]

REACTIONS (1)
  - CLOSTRIDIUM DIFFICILE COLITIS [None]
